FAERS Safety Report 8254711-0 (Version None)
Quarter: 2012Q1

REPORT INFORMATION
  Report Type: 
  Country: None (occurrence: None)
  Receive Date: 20120322
  Receipt Date: 20120106
  Transmission Date: 20120608
  Serious: Yes (Hospitalization)
  Sender: FDA-Public Use
  Company Number: UTC-014403

PATIENT
  Age: 76 Year
  Sex: Female
  Weight: 71.82 kg

DRUGS (7)
  1. REVATIO [Concomitant]
  2. DIURETICS (DIURETICS) [Concomitant]
  3. COUMADIN [Concomitant]
  4. ASPIRIN [Concomitant]
  5. TYVASO [Suspect]
     Indication: COR PULMONALE CHRONIC
     Dosage: 168 MCG (42 MCG, 4 IN 1 D), INHALATION
     Route: 055
     Dates: start: 20111122
  6. LETAIRIS [Concomitant]
  7. DIGOXIN [Concomitant]

REACTIONS (3)
  - LUNG DISORDER [None]
  - COLONOSCOPY [None]
  - FLUID RETENTION [None]
